FAERS Safety Report 4857044-5 (Version None)
Quarter: 2005Q4

REPORT INFORMATION
  Report Type: 
  Country: None (occurrence: None)
  Receive Date: 20051219
  Receipt Date: 20041215
  Transmission Date: 20060501
  Serious: No
  Sender: FDA-Public Use
  Company Number: US-GLAXOSMITHKLINE-A0537412A

PATIENT
  Age: 42 Year
  Sex: Female

DRUGS (1)
  1. NICODERM CQ [Suspect]
     Dosage: 14MG SINGLE DOSE
     Route: 062
     Dates: start: 20041215, end: 20041215

REACTIONS (7)
  - APPLICATION SITE PRURITUS [None]
  - DIZZINESS [None]
  - DRY MOUTH [None]
  - DYSPNOEA [None]
  - HEART RATE INCREASED [None]
  - NAUSEA [None]
  - STOMACH DISCOMFORT [None]
